FAERS Safety Report 8560800-3 (Version None)
Quarter: 2012Q3

REPORT INFORMATION
  Report Type: 
  Country: None (occurrence: None)
  Receive Date: 20120727
  Receipt Date: 20120727
  Transmission Date: 20120928
  Serious: Yes (Hospitalization)
  Sender: FDA-Public Use
  Company Number: None

PATIENT
  Age: 81 Year
  Sex: Male
  Weight: 112.1 kg

DRUGS (8)
  1. SIMVASTATIN [Concomitant]
  2. LEVOTHYROXINE SODIUM [Concomitant]
  3. FUROSEMIDE [Concomitant]
  4. TAMSULOSIN HCL [Concomitant]
  5. ASPIRIN [Suspect]
     Indication: CARDIOVASCULAR EVENT PROPHYLAXIS
     Dosage: 81MG QDAY PO CHRONIC
     Route: 048
  6. LISINOPRIL [Concomitant]
  7. M.V.I. [Concomitant]
  8. VITAMIN B-12 [Concomitant]

REACTIONS (6)
  - NAUSEA [None]
  - DUODENAL ULCER [None]
  - HYPOTENSION [None]
  - CHEST PAIN [None]
  - UPPER GASTROINTESTINAL HAEMORRHAGE [None]
  - HYPOVOLAEMIC SHOCK [None]
